FAERS Safety Report 7788380-0 (Version None)
Quarter: 2011Q3

REPORT INFORMATION
  Report Type: 
  Country: None (occurrence: None)
  Receive Date: 20110930
  Receipt Date: 20110926
  Transmission Date: 20111222
  Serious: Yes (Hospitalization, Other)
  Sender: FDA-Public Use
  Company Number: US-AMGEN-USASP2011017986

PATIENT
  Age: 75 Year
  Sex: Male
  Weight: 67 kg

DRUGS (15)
  1. INSULIN [Concomitant]
  2. CORTICOSTEROIDS [Concomitant]
  3. LISINOPRIL [Concomitant]
  4. PREDNISONE [Concomitant]
  5. DANOCRINE [Concomitant]
  6. CALCIUM CARBONATE [Concomitant]
  7. SIMVASTATIN [Concomitant]
  8. NPLATE [Suspect]
     Indication: IDIOPATHIC THROMBOCYTOPENIC PURPURA
     Dosage: 10 MUG/KG, QWK
     Route: 058
     Dates: start: 20070101, end: 20110701
  9. RITUXIMAB [Concomitant]
  10. FOSAMAX [Concomitant]
  11. CYCLOSPORINE [Concomitant]
  12. DILTIAZEM HCL [Concomitant]
  13. FOLIC ACID [Concomitant]
  14. ZOLOFT [Concomitant]
  15. VITAMIN B6 [Concomitant]

REACTIONS (16)
  - THERAPEUTIC RESPONSE DECREASED [None]
  - THROMBOSIS [None]
  - HAEMORRHAGE [None]
  - PLATELET COUNT DECREASED [None]
  - CARDIAC VALVE DISEASE [None]
  - DIABETES MELLITUS [None]
  - HAEMORRHOIDS [None]
  - HYPERCOAGULATION [None]
  - ATRIAL FIBRILLATION [None]
  - THROMBOCYTOPENIA [None]
  - SUTURE RELATED COMPLICATION [None]
  - SKIN HAEMORRHAGE [None]
  - UPPER EXTREMITY MASS [None]
  - GASTROINTESTINAL HAEMORRHAGE [None]
  - POST PROCEDURAL HAEMATOMA [None]
  - DRUG INEFFECTIVE [None]
